FAERS Safety Report 5290935-2 (Version None)
Quarter: 2007Q2

REPORT INFORMATION
  Report Type: 
  Country: None (occurrence: None)
  Receive Date: 20070405
  Receipt Date: 20070405
  Transmission Date: 20071010
  Serious: Yes (Other)
  Sender: FDA-Public Use
  Company Number: None

PATIENT
  Age: 61 Year
  Sex: Male

DRUGS (1)
  1. FONDAPARINUX     GLAXO SMITH KLINE [Suspect]
     Indication: ANTICOAGULANT THERAPY
     Dosage: 2.5 MG  DAILY  SQ
     Route: 058
     Dates: start: 20070313, end: 20070329

REACTIONS (1)
  - THROMBOCYTOPENIA [None]
